FAERS Safety Report 9486682 (Version 1)
Quarter: 2013Q3

REPORT INFORMATION
  Report Type: Spontaneous
  Country: JP (occurrence: JP)
  Receive Date: 20130829
  Receipt Date: 20130829
  Transmission Date: 20140515
  Serious: Yes (Other)
  Sender: FDA-Public Use
  Company Number: JP-B.I. PHARMACEUTICALS,INC./RIDGEFIELD-2013-BI-26060SJ

PATIENT
  Age: 8 Decade
  Sex: Male

DRUGS (3)
  1. HARNAL (TAMSULOSIN) ORODISPERSABLE CR [Suspect]
     Dosage: FORMULATION: ORODISPERSIBLE CR TABLET
     Route: 048
  2. HARNAL (TAMSULOSIN) ORODISPERSABLE CR [Suspect]
     Dosage: FORMULATION: ORODISPERSIBLE CR TABLET
     Route: 048
  3. OLMETEC (OLMESARTAN MEDOXOMIL) TABLET [Concomitant]

REACTIONS (2)
  - Loss of consciousness [Unknown]
  - Dizziness [Unknown]
